FAERS Safety Report 17038736 (Version 1)
Quarter: 2019Q4

REPORT INFORMATION
  Report Type: Spontaneous
  Country: US (occurrence: US)
  Receive Date: 20191115
  Receipt Date: 20191115
  Transmission Date: 20200122
  Serious: Yes (Hospitalization)
  Sender: FDA-Public Use
  Company Number: NVSC2019US035967

PATIENT
  Age: 84 Year
  Sex: Female

DRUGS (1)
  1. EXELON PATCH [Suspect]
     Active Substance: RIVASTIGMINE
     Indication: DEMENTIA ALZHEIMER^S TYPE
     Dosage: 4.6 MG, QD (6 PATCHES)
     Route: 062

REACTIONS (4)
  - Cholinergic syndrome [Recovered/Resolved]
  - Wrong technique in product usage process [Recovered/Resolved]
  - Hyponatraemia [Recovered/Resolved]
  - Toxicity to various agents [Recovered/Resolved]
